FAERS Safety Report 4450379-X (Version None)
Quarter: 2004Q3

REPORT INFORMATION
  Report Type: 
  Country: None (occurrence: None)
  Receive Date: 20040914
  Receipt Date: 20040831
  Transmission Date: 20050211
  Serious: Yes (Hospitalization)
  Sender: FDA-Public Use
  Company Number: 2002GB01854

PATIENT
  Age: 62 Year
  Sex: Female
  Weight: 64 kg

DRUGS (6)
  1. OMEPRAZOLE [Suspect]
     Dates: end: 20020707
  2. OMEPRAZOLE [Suspect]
  3. EFFEXOR [Concomitant]
  4. GAVISCON [Concomitant]
  5. IBUGEL [Concomitant]
  6. LARGACTIL [Concomitant]

REACTIONS (4)
  - ABDOMINAL PAIN UPPER [None]
  - GASTROINTESTINAL HAEMORRHAGE [None]
  - HAEMATEMESIS [None]
  - OESOPHAGITIS [None]
